FAERS Safety Report 25276133 (Version 1)
Quarter: 2025Q2

REPORT INFORMATION
  Report Type: Spontaneous
  Country: CN (occurrence: CN)
  Receive Date: 20250507
  Receipt Date: 20250507
  Transmission Date: 20250717
  Serious: Yes (Death, Life-Threatening, Other)
  Sender: CHEPLAPHARM
  Company Number: None

PATIENT
  Age: 51 Year
  Sex: Female

DRUGS (8)
  1. PACLITAXEL [Suspect]
     Active Substance: PACLITAXEL
     Indication: Gallbladder cancer stage III
     Dates: start: 202103, end: 202109
  2. CAPECITABINE [Suspect]
     Active Substance: CAPECITABINE
     Indication: Gallbladder cancer stage III
     Dates: start: 202303
  3. ERLOTINIB [Suspect]
     Active Substance: ERLOTINIB
     Indication: Gallbladder cancer stage III
     Route: 048
     Dates: start: 202303
  4. GEMCITABINE [Suspect]
     Active Substance: GEMCITABINE
     Indication: Gallbladder cancer stage III
  5. IFOSFAMIDE [Suspect]
     Active Substance: IFOSFAMIDE
     Indication: Gallbladder cancer stage III
     Dates: start: 202103, end: 202109
  6. OXALIPLATIN [Suspect]
     Active Substance: OXALIPLATIN
     Indication: Gallbladder cancer stage III
     Dates: start: 202303
  7. CISPLATIN [Suspect]
     Active Substance: CISPLATIN
     Indication: Gallbladder cancer stage III
     Dosage: CISPLATINUM 28MG D1-3, Q21D
  8. DURVALUMAB [Suspect]
     Active Substance: DURVALUMAB
     Indication: Gallbladder cancer stage III
     Dates: start: 202207, end: 202302

REACTIONS (7)
  - Upper gastrointestinal haemorrhage [Fatal]
  - Biliary obstruction [Fatal]
  - Biliary tract infection [Fatal]
  - Myelosuppression [Recovering/Resolving]
  - Small intestinal obstruction [Recovering/Resolving]
  - Hepatic function abnormal [Recovering/Resolving]
  - Off label use [Unknown]

NARRATIVE: CASE EVENT DATE: 20210101
